FAERS Safety Report 9159148 (Version 2)
Quarter: 2013Q1

REPORT INFORMATION
  Report Type: Spontaneous
  Country: US (occurrence: None)
  Receive Date: 20130311
  Receipt Date: 20130311
  Transmission Date: 20140127
  Serious: Yes (Death, Hospitalization)
  Sender: FDA-Public Use
  Company Number: 13-F-US-00068

PATIENT
  Age: 77 Year
  Sex: Male

DRUGS (2)
  1. FOLOTYN [Suspect]
     Indication: PERIPHERAL T-CELL LYMPHOMA UNSPECIFIED
     Route: 042
     Dates: start: 201009, end: 201108
  2. UNSPECIFIED INGREDIENTS [Suspect]
     Indication: PERIPHERAL T-CELL LYMPHOMA UNSPECIFIED

REACTIONS (3)
  - Hepatic failure [None]
  - Hepatitis C [None]
  - Disease progression [None]
